FAERS Safety Report 4740309-5 (Version None)
Quarter: 2005Q3

REPORT INFORMATION
  Report Type: 
  Country: None (occurrence: None)
  Receive Date: 20050809
  Receipt Date: 20050809
  Transmission Date: 20060218
  Serious: Yes (Hospitalization, Disabling, Other)
  Sender: FDA-Public Use
  Company Number: None

PATIENT
  Age: 86 Year
  Sex: Male
  Weight: 63.3 kg

DRUGS (4)
  1. OCTAGAM [Suspect]
     Indication: NECROTISING FASCIITIS
     Dosage: SEE IMAGE
     Route: 042
     Dates: start: 20050701, end: 20050702
  2. OCTAGAM [Suspect]
     Indication: SEPTIC SHOCK
     Dosage: SEE IMAGE
     Route: 042
     Dates: start: 20050701, end: 20050702
  3. OCTAGAM [Suspect]
     Indication: NECROTISING FASCIITIS
     Dosage: SEE IMAGE
     Route: 042
     Dates: start: 20050702, end: 20050703
  4. OCTAGAM [Suspect]
     Indication: SEPTIC SHOCK
     Dosage: SEE IMAGE
     Route: 042
     Dates: start: 20050702, end: 20050703

REACTIONS (7)
  - BRAIN DAMAGE [None]
  - DISORIENTATION [None]
  - HYPERGLYCAEMIA [None]
  - HYPOTONIA [None]
  - INFUSION RELATED REACTION [None]
  - LOSS OF CONSCIOUSNESS [None]
  - PUPILLARY REFLEX IMPAIRED [None]
